FAERS Safety Report 18099471 (Version 5)
Quarter: 2020Q4

REPORT INFORMATION
  Report Type: Report from Study
  Country: US (occurrence: US)
  Receive Date: 20200731
  Receipt Date: 20201112
  Transmission Date: 20210113
  Serious: Yes (Hospitalization)
  Sender: FDA-Public Use
  Company Number: US-B.I. PHARMACEUTICALS,INC./RIDGEFIELD-2020-BI-019984

PATIENT
  Age: 81 Year
  Sex: Female

DRUGS (4)
  1. OFEV [Suspect]
     Active Substance: NINTEDANIB
  2. OFEV [Suspect]
     Active Substance: NINTEDANIB
     Indication: IDIOPATHIC PULMONARY FIBROSIS
     Dosage: OFEV 200 MG DAILY
     Route: 048
     Dates: start: 20200302
  3. OFEV [Suspect]
     Active Substance: NINTEDANIB
     Route: 048
  4. TYVASO [Suspect]
     Active Substance: TREPROSTINIL
     Indication: PRODUCT USED FOR UNKNOWN INDICATION
     Route: 065

REACTIONS (15)
  - Decreased appetite [Unknown]
  - Peripheral swelling [Unknown]
  - Fluid overload [Unknown]
  - Haematochezia [Unknown]
  - Oedema peripheral [Not Recovered/Not Resolved]
  - Feeding disorder [Unknown]
  - Nausea [Unknown]
  - Diarrhoea [Unknown]
  - Coronary arterial stent insertion [Unknown]
  - Pain in jaw [Not Recovered/Not Resolved]
  - Cough [Not Recovered/Not Resolved]
  - Constipation [Unknown]
  - Appetite disorder [Unknown]
  - Abdominal discomfort [Unknown]
  - Abdominal pain upper [Not Recovered/Not Resolved]

NARRATIVE: CASE EVENT DATE: 2020
